FAERS Safety Report 22050594 (Version 1)
Quarter: 2023Q1

REPORT INFORMATION
  Report Type: Spontaneous
  Country: US (occurrence: None)
  Receive Date: 20230228
  Receipt Date: 20230228
  Transmission Date: 20230418
  Serious: No
  Sender: FDA-Public Use
  Company Number: None

PATIENT
  Age: 46 Year
  Sex: Female

DRUGS (1)
  1. HUMIRA [Suspect]
     Active Substance: ADALIMUMAB
     Indication: Hidradenitis
     Dosage: INJECT 160MG (2 PENS) SUBCUTANEOUSLY  ON DAY 1, 80MG (1 PEN)  ON DAY 15, THEN 80MG EVERY OTHER WEEK
     Route: 058
     Dates: start: 202208

REACTIONS (1)
  - Cough [None]
